FAERS Safety Report 13568816 (Version 8)
Quarter: 2023Q4

REPORT INFORMATION
  Report Type: Spontaneous
  Country: US (occurrence: US)
  Receive Date: 20170522
  Receipt Date: 20231218
  Transmission Date: 20240109
  Serious: No
  Sender: FDA-Public Use
  Company Number: US-PFIZER INC-2017216926

PATIENT
  Age: 55 Year
  Sex: Female
  Weight: 72.562 kg

DRUGS (4)
  1. XELJANZ XR [Suspect]
     Active Substance: TOFACITINIB CITRATE
     Indication: Rheumatoid arthritis
     Dosage: 11 MG, 1X/DAY (3 YEARS)
  2. FAMOTIDINE [Concomitant]
     Active Substance: FAMOTIDINE
     Indication: Gastrooesophageal reflux disease
     Dosage: 40 MG, 1X/DAY
     Dates: start: 20231115
  3. HYDROCHLOROTHIAZIDE\LISINOPRIL [Concomitant]
     Active Substance: HYDROCHLOROTHIAZIDE\LISINOPRIL
     Indication: Blood pressure abnormal
     Dosage: 1 DF, 1X/DAY (8 YEARS)
  4. METFORMIN [Concomitant]
     Active Substance: METFORMIN HYDROCHLORIDE
     Indication: Diabetes mellitus
     Dosage: 500 MG, 2X/DAY (8 YEARS)

REACTIONS (14)
  - Nodule [Unknown]
  - Arthralgia [Unknown]
  - Synovial disorder [Unknown]
  - Deformity [Unknown]
  - Grip strength decreased [Unknown]
  - Joint range of motion decreased [Unknown]
  - Crepitations [Unknown]
  - Dry skin [Unknown]
  - Memory impairment [Unknown]
  - Headache [Unknown]
  - Confusional state [Unknown]
  - Visual impairment [Unknown]
  - Hypersensitivity [Unknown]
  - Cough [Unknown]
